FAERS Safety Report 22032637 (Version 2)
Quarter: 2023Q1

REPORT INFORMATION
  Report Type: Spontaneous
  Country: JP (occurrence: None)
  Receive Date: 20230224
  Receipt Date: 20230315
  Transmission Date: 20230418
  Serious: Yes (Hospitalization, Other)
  Sender: FDA-Public Use
  Company Number: 2023A043310

PATIENT
  Age: 64 Year
  Sex: Female

DRUGS (18)
  1. TEZSPIRE [Suspect]
     Active Substance: TEZEPELUMAB-EKKO
     Indication: Asthma
     Dosage: DOSE UNKNOWN
     Route: 058
     Dates: end: 20230214
  2. ZYPREXA [Concomitant]
     Active Substance: OLANZAPINE
  3. SOLANAX [Concomitant]
     Active Substance: ALPRAZOLAM
  4. DIAZEPAM [Concomitant]
     Active Substance: DIAZEPAM
  5. CLARITHROMYCIN [Concomitant]
     Active Substance: CLARITHROMYCIN
  6. SINGULAIR [Concomitant]
     Active Substance: MONTELUKAST SODIUM
  7. ZYRTEC [Concomitant]
     Active Substance: CETIRIZINE HYDROCHLORIDE
  8. THEO-DUR [Concomitant]
     Active Substance: THEOPHYLLINE ANHYDROUS
  9. DOMENAN [Concomitant]
  10. TELMISARTAN [Concomitant]
     Active Substance: TELMISARTAN
  11. AMLODIPINE [Concomitant]
     Active Substance: AMLODIPINE BESYLATE
  12. ATORVASTATIN [Concomitant]
     Active Substance: ATORVASTATIN
  13. ATENOLOL [Concomitant]
     Active Substance: ATENOLOL
  14. MIYA-BM [Concomitant]
     Active Substance: CLOSTRIDIUM BUTYRICUM SPORES STRAIN M-55
  15. REFLEX [Concomitant]
     Active Substance: MIRTAZAPINE
  16. SERTRALINE HYDROCHLORIDE [Concomitant]
     Active Substance: SERTRALINE HYDROCHLORIDE
  17. PYRETHIA [Concomitant]
     Active Substance: PROMETHAZINE HYDROCHLORIDE
  18. BROTIZOLAM [Concomitant]
     Active Substance: BROTIZOLAM

REACTIONS (1)
  - Pneumocystis jirovecii pneumonia [Not Recovered/Not Resolved]

NARRATIVE: CASE EVENT DATE: 20230206
